FAERS Safety Report 8572914-2 (Version None)
Quarter: 2012Q3

REPORT INFORMATION
  Report Type: 
  Country: None (occurrence: None)
  Receive Date: 20120806
  Receipt Date: 20120726
  Transmission Date: 20120928
  Serious: Yes (Hospitalization)
  Sender: FDA-Public Use
  Company Number: FR-ASTRAZENECA-2012SE53628

PATIENT
  Age: 1004 Month
  Sex: Male

DRUGS (7)
  1. CLOPIDOGREL BISULFATE AND ASPIRIN [Suspect]
     Indication: PROPHYLAXIS
     Route: 048
  2. LASIX [Suspect]
     Indication: HYPERTENSION
     Route: 048
  3. PERINDOPRIL ERBUMINE [Suspect]
     Route: 048
  4. METFORMIN HCL [Suspect]
     Indication: TYPE 2 DIABETES MELLITUS
     Route: 048
  5. CRESTOR [Suspect]
     Indication: PROPHYLAXIS
     Route: 048
  6. ATENOLOL [Suspect]
     Indication: HYPERTENSION
     Route: 048
  7. PROPYLTHIOURACIL [Suspect]
     Indication: HYPERTHYROIDISM
     Route: 048
     Dates: start: 20120430, end: 20120610

REACTIONS (4)
  - CHOLESTASIS [None]
  - HYPERTHYROIDISM [None]
  - RENAL FAILURE ACUTE [None]
  - CYTOLYTIC HEPATITIS [None]
